FAERS Safety Report 19108628 (Version 1)
Quarter: 2021Q2

REPORT INFORMATION
  Report Type: Spontaneous
  Country: US (occurrence: US)
  Receive Date: 20210408
  Receipt Date: 20210408
  Transmission Date: 20210717
  Serious: No
  Sender: FDA-Public Use
  Company Number: US-TEVA-2021-US-1895015

PATIENT
  Age: 36 Year
  Sex: Female
  Weight: 149.68 kg

DRUGS (1)
  1. AUSTEDO [Suspect]
     Active Substance: DEUTETRABENAZINE
     Indication: TARDIVE DYSKINESIA
     Dosage: 30 MG EVERY MORNING+36 MG EVERY EVENING
     Route: 065
     Dates: start: 2017

REACTIONS (3)
  - Somnolence [Unknown]
  - Affective disorder [Unknown]
  - Incorrect dose administered [Unknown]

NARRATIVE: CASE EVENT DATE: 20210318
